FAERS Safety Report 18644861 (Version 1)
Quarter: 2020Q4

REPORT INFORMATION
  Report Type: Spontaneous
  Country: FR (occurrence: FR)
  Receive Date: 20201221
  Receipt Date: 20201221
  Transmission Date: 20210114
  Serious: Yes (Other)
  Sender: FDA-Public Use
  Company Number: FR-AMERICAN REGENT INC-2020002713

PATIENT
  Age: 76 Year
  Sex: Male
  Weight: 118 kg

DRUGS (3)
  1. VENOFER [Suspect]
     Active Substance: IRON SUCROSE
     Indication: IRON DEFICIENCY ANAEMIA
     Dosage: 200 MG, 1 IN 1 TOTAL
     Route: 042
     Dates: start: 20201116, end: 2020
  2. CIFLOX                             /00697201/ [Suspect]
     Active Substance: CIPROFLOXACIN
     Indication: SEPSIS
     Dosage: 500 MG (500 MG, 1 IN 1 D)
     Route: 048
     Dates: start: 20201117, end: 20201118
  3. CEFTAZIDIME MYLAN [Suspect]
     Active Substance: CEFTAZIDIME
     Indication: SEPSIS
     Dosage: 1 GM (1 GM, 1 IN 1 D)
     Route: 042
     Dates: start: 20201117, end: 20201118

REACTIONS (1)
  - Rash maculo-papular [Recovered/Resolved]

NARRATIVE: CASE EVENT DATE: 20201118
